FAERS Safety Report 13306450 (Version 2)
Quarter: 2017Q2

REPORT INFORMATION
  Report Type: Spontaneous
  Country: US (occurrence: US)
  Receive Date: 20170308
  Receipt Date: 20170426
  Transmission Date: 20170830
  Serious: Yes (Other)
  Sender: FDA-Public Use
  Company Number: US-ARALEZ PHARMACEUTICALS R+D INC.-ARA-TP-US-2017-79

PATIENT
  Age: 74 Year
  Sex: Female
  Weight: 69.92 kg

DRUGS (9)
  1. IBRANCE [Suspect]
     Active Substance: PALBOCICLIB
     Indication: BREAST CANCER METASTATIC
     Route: 030
     Dates: start: 201701, end: 20170216
  2. DIURETIC MEDICATION [Concomitant]
     Indication: DIURETIC THERAPY
  3. PROBIOTICS [Concomitant]
     Active Substance: PROBIOTICS NOS
  4. FASLODEX [Suspect]
     Active Substance: FULVESTRANT
     Indication: BREAST CANCER METASTATIC
     Route: 030
     Dates: start: 201701, end: 20170216
  5. ZETIA [Concomitant]
     Active Substance: EZETIMIBE
     Indication: BLOOD CHOLESTEROL
  6. METOPROLOL SUCCINATE. [Suspect]
     Active Substance: METOPROLOL SUCCINATE
     Indication: BLOOD PRESSURE MANAGEMENT
  7. FASLODEX [Suspect]
     Active Substance: FULVESTRANT
     Indication: ASCITES
     Route: 030
     Dates: start: 20170216
  8. IBRANCE [Suspect]
     Active Substance: PALBOCICLIB
     Indication: ASCITES
     Route: 030
     Dates: start: 20170216
  9. ESTROGEN AND HORMONE CANCER MEDICATION [Concomitant]
     Indication: BREAST CANCER
     Dates: start: 2014

REACTIONS (7)
  - Nausea [Not Recovered/Not Resolved]
  - Vomiting [Recovered/Resolved]
  - Asthenia [Not Recovered/Not Resolved]
  - Product use issue [Not Recovered/Not Resolved]
  - Diarrhoea [Not Recovered/Not Resolved]
  - Breast cancer [Not Recovered/Not Resolved]
  - Ascites [Unknown]

NARRATIVE: CASE EVENT DATE: 2014
